FAERS Safety Report 10011502 (Version 5)
Quarter: 2014Q2

REPORT INFORMATION
  Report Type: Spontaneous
  Country: FR (occurrence: FR)
  Receive Date: 20140314
  Receipt Date: 20140408
  Transmission Date: 20141212
  Serious: Yes (Hospitalization, Other)
  Sender: FDA-Public Use
  Company Number: FR-SA-2014SA028389

PATIENT
  Age: 8 Year
  Sex: Male
  Weight: 26 kg

DRUGS (5)
  1. CEREZYME [Suspect]
     Indication: GAUCHER^S DISEASE
     Dosage: DOSE: 76.9 U/KG; 5 BOTTLES
     Route: 042
     Dates: start: 20070118, end: 2013
  2. CEREZYME [Suspect]
     Indication: GAUCHER^S DISEASE
     Route: 042
     Dates: start: 20131122
  3. URBANYL [Concomitant]
     Indication: CONVULSION PROPHYLAXIS
     Dates: start: 201312
  4. URBANYL [Concomitant]
     Indication: CONVULSION
     Dates: start: 201312
  5. RIVOTRIL [Concomitant]

REACTIONS (6)
  - Staphylococcus test positive [Recovered/Resolved]
  - Convulsion [Recovered/Resolved]
  - Device related infection [Unknown]
  - Pyrexia [Unknown]
  - Infusion related reaction [Recovered/Resolved]
  - Chills [Recovered/Resolved]
